FAERS Safety Report 9799856 (Version 1)
Quarter: 2014Q1

REPORT INFORMATION
  Report Type: Spontaneous
  Country: DE (occurrence: DE)
  Receive Date: 20140106
  Receipt Date: 20140106
  Transmission Date: 20141002
  Serious: Yes (Other)
  Sender: FDA-Public Use
  Company Number: DE-PFIZER INC-2014003054

PATIENT
  Age: 25 Year
  Sex: Female

DRUGS (1)
  1. ZOLOFT [Suspect]
     Dosage: 150 MG, 1X/DAY
     Dates: start: 2011, end: 201209

REACTIONS (8)
  - Drug withdrawal syndrome [Unknown]
  - Psychotic behaviour [Unknown]
  - Persecutory delusion [Unknown]
  - Disorientation [Unknown]
  - Aggression [Unknown]
  - Amnesia [Unknown]
  - Nausea [Unknown]
  - Vomiting [Unknown]
